FAERS Safety Report 12314037 (Version 1)
Quarter: 2016Q2

REPORT INFORMATION
  Report Type: Spontaneous
  Country: JP (occurrence: JP)
  Receive Date: 20160428
  Receipt Date: 20160428
  Transmission Date: 20160815
  Serious: Yes (Hospitalization)
  Sender: FDA-Public Use
  Company Number: JP-ASTRAZENECA-2016SE45314

PATIENT
  Sex: Male

DRUGS (5)
  1. BLOPRESS [Suspect]
     Active Substance: CANDESARTAN CILEXETIL
     Dosage: DOSE UNKNOWN
     Route: 048
  2. ADALAT [Suspect]
     Active Substance: NIFEDIPINE
     Dosage: DOSE UNKNOWN
     Route: 065
  3. FORXIGA [Suspect]
     Active Substance: DAPAGLIFLOZIN
     Indication: TYPE 2 DIABETES MELLITUS
     Route: 048
     Dates: start: 201603
  4. ITRIZOLE [Suspect]
     Active Substance: ITRACONAZOLE
     Dosage: DOSE UNKNOWN
     Route: 065
  5. BEZATOL SR [Suspect]
     Active Substance: BEZAFIBRATE
     Dosage: DOSE UNKNOWN
     Route: 065

REACTIONS (1)
  - Drug eruption [Recovered/Resolved]

NARRATIVE: CASE EVENT DATE: 20160329
